FAERS Safety Report 8962189 (Version 2)
Quarter: 2012Q4

REPORT INFORMATION
  Report Type: 
  Country: US (occurrence: US)
  Receive Date: 20121212
  Receipt Date: 20121213
  Transmission Date: 20130627
  Serious: Yes (Other)
  Sender: FDA-Public Use
  Company Number: US-PFIZER INC-2012311718

PATIENT
  Age: 69 Year
  Sex: Female

DRUGS (2)
  1. INDERAL [Suspect]
     Dosage: UNK
     Route: 065
  2. LETAIRIS [Suspect]
     Indication: PULMONARY HYPERTENSION
     Dosage: 10 mg, UNK
     Route: 048
     Dates: start: 20110831

REACTIONS (1)
  - Heart rate decreased [Unknown]
